FAERS Safety Report 16788479 (Version 5)
Quarter: 2024Q2

REPORT INFORMATION
  Report Type: Report from Study
  Country: FR (occurrence: FR)
  Receive Date: 20190910
  Receipt Date: 20240417
  Transmission Date: 20240716
  Serious: Yes (Hospitalization)
  Sender: FDA-Public Use
  Company Number: FR-ABBVIE-19K-056-2915198-00

PATIENT
  Age: 61 Year
  Sex: Female
  Weight: 58 kg

DRUGS (5)
  1. HUMIRA [Suspect]
     Active Substance: ADALIMUMAB
     Indication: Colitis ulcerative
     Dosage: FORM STRENGTH: 40 MG
     Route: 058
     Dates: start: 20180525, end: 20180901
  2. HUMIRA [Suspect]
     Active Substance: ADALIMUMAB
     Dosage: DAY 14; FORM STRENGTH: 80 MG
     Route: 058
     Dates: start: 20180511, end: 20180511
  3. HUMIRA [Suspect]
     Active Substance: ADALIMUMAB
     Dosage: DAY 1
     Route: 058
     Dates: start: 20180427, end: 20180427
  4. Solupred [Concomitant]
     Indication: Colitis ulcerative
     Route: 048
     Dates: start: 20151221, end: 20171214
  5. Solupred [Concomitant]
     Indication: Colitis ulcerative
     Route: 048
     Dates: start: 20171223

REACTIONS (2)
  - Colitis [Recovered/Resolved]
  - Drug ineffective [Unknown]

NARRATIVE: CASE EVENT DATE: 20180101
